FAERS Safety Report 16109431 (Version 1)
Quarter: 2019Q1

REPORT INFORMATION
  Report Type: Spontaneous
  Country: FR (occurrence: FR)
  Receive Date: 20190324
  Receipt Date: 20190324
  Transmission Date: 20190418
  Serious: Yes (Hospitalization)
  Sender: FDA-Public Use
  Company Number: PHHY2019FR062469

PATIENT
  Age: 30 Year
  Sex: Female
  Weight: 48 kg

DRUGS (5)
  1. PACLITAXEL EBEWE [Suspect]
     Active Substance: PACLITAXEL
     Indication: ADENOCARCINOMA
     Dosage: 120 MG, ONCE/SINGLE
     Route: 041
     Dates: start: 20181126, end: 20181126
  2. METHYLPREDNISOLONE MYLAN [Concomitant]
     Active Substance: METHYLPREDNISOLONE
     Indication: PREMEDICATION
     Dosage: 60 MG, ONCE/SINGLE
     Route: 040
     Dates: start: 20181126, end: 20181126
  3. POLARAMINE [Concomitant]
     Active Substance: DEXCHLORPHENIRAMINE MALEATE
     Indication: PREMEDICATION
     Dosage: 2.5 MG, ONCE/SINGLE
     Route: 040
     Dates: start: 20181126, end: 20181126
  4. AZANTAC [Concomitant]
     Active Substance: RANITIDINE HYDROCHLORIDE
     Indication: PREMEDICATION
     Dosage: 25 MG, QD
     Route: 040
     Dates: start: 20181126, end: 20181126
  5. FER MYLAN [Concomitant]
     Indication: ANAEMIA
     Dosage: 300 MG, ONCE/SINGLE
     Route: 042
     Dates: start: 20181126, end: 20181126

REACTIONS (6)
  - Hot flush [Recovered/Resolved]
  - Infusion related reaction [Recovered/Resolved]
  - Hyperhidrosis [Recovered/Resolved]
  - Oxygen saturation decreased [Recovered/Resolved]
  - Loss of consciousness [Recovered/Resolved]
  - Generalised erythema [Recovered/Resolved]

NARRATIVE: CASE EVENT DATE: 20181126
